FAERS Safety Report 5335873-1 (Version None)
Quarter: 2007Q2

REPORT INFORMATION
  Report Type: 
  Country: None (occurrence: None)
  Receive Date: 20070228
  Receipt Date: 20061206
  Transmission Date: 20071010
  Serious: No
  Sender: FDA-Public Use
  Company Number: S06-USA-05139-01

PATIENT
  Age: 53 Year
  Sex: Female

DRUGS (2)
  1. CAMPRAL [Suspect]
     Indication: ABSTAINS FROM ALCOHOL
     Dosage: 666 MG TID PO
     Route: 048
     Dates: start: 20061025, end: 20061206
  2. MANY CONCOMITANT MEDICATIONS [Concomitant]

REACTIONS (1)
  - ALOPECIA [None]
